FAERS Safety Report 7110310-5 (Version None)
Quarter: 2010Q4

REPORT INFORMATION
  Report Type: 
  Country: None (occurrence: None)
  Receive Date: 20101118
  Receipt Date: 20100805
  Transmission Date: 20110411
  Serious: No
  Sender: FDA-Public Use
  Company Number: A0874221A

PATIENT
  Age: 65 Year
  Sex: Male

DRUGS (3)
  1. COREG CR [Suspect]
     Indication: ATRIAL FIBRILLATION
     Dosage: 10MG PER DAY
     Route: 048
     Dates: start: 20100804
  2. VESICARE [Concomitant]
  3. COUMADIN [Concomitant]

REACTIONS (1)
  - URINARY INCONTINENCE [None]
